FAERS Safety Report 23216390 (Version 1)
Quarter: 2023Q4

REPORT INFORMATION
  Report Type: Report from Study
  Country: CA (occurrence: None)
  Receive Date: 20231122
  Receipt Date: 20231122
  Transmission Date: 20240110
  Serious: Yes (Death, Other)
  Sender: FDA-Public Use
  Company Number: 2023A264014

PATIENT
  Sex: Female

DRUGS (8)
  1. FASENRA [Suspect]
     Active Substance: BENRALIZUMAB
     Indication: Asthma
     Route: 058
     Dates: start: 20190613
  2. SEREVENT DISKUS [Concomitant]
     Active Substance: SALMETEROL XINAFOATE
  3. ALVESCO [Concomitant]
     Active Substance: CICLESONIDE
  4. TYLENOL ARTHRITIS PAIN [Concomitant]
     Active Substance: ACETAMINOPHEN
     Dosage: 1000MG 3X DAILY
  5. VITAMIN D [Concomitant]
     Active Substance: VITAMIN D NOS
  6. PANTALOC [Concomitant]
     Dosage: 40MG X 2 DAILY
  7. HYDROCHLOROSICIL [Concomitant]
  8. MYCARDIS [Concomitant]

REACTIONS (1)
  - Death [Fatal]
